FAERS Safety Report 5322701-3 (Version None)
Quarter: 2007Q2

REPORT INFORMATION
  Report Type: 
  Country: None (occurrence: None)
  Receive Date: 20070511
  Receipt Date: 20070503
  Transmission Date: 20071010
  Serious: Yes (Death, Hospitalization, Other)
  Sender: FDA-Public Use
  Company Number: US-PFIZER INC-2006065267

PATIENT
  Sex: Female
  Weight: 59 kg

DRUGS (4)
  1. CELECOXIB [Suspect]
     Indication: ARTHRITIS
     Dates: start: 20020101, end: 20040401
  2. CELECOXIB [Suspect]
     Indication: INFLAMMATION
  3. CELECOXIB [Suspect]
     Indication: PAIN
  4. CELECOXIB [Suspect]

REACTIONS (3)
  - CEREBROVASCULAR ACCIDENT [None]
  - DEPRESSION [None]
  - PAIN [None]
